FAERS Safety Report 5831880-0 (Version None)
Quarter: 2008Q3

REPORT INFORMATION
  Report Type: 
  Country: None (occurrence: None)
  Receive Date: 20080731
  Receipt Date: 20080718
  Transmission Date: 20090109
  Serious: Yes (Hospitalization)
  Sender: FDA-Public Use
  Company Number: 02100-JPN-07-0595

PATIENT
  Age: 58 Year
  Sex: Male

DRUGS (18)
  1. PLETAL [Suspect]
     Indication: LACUNAR INFARCTION
     Dosage: 100 MG, BID; 100 MG BID; 100 MG BID ORAL; 100 MG QD ORAL; 100 MG QD ORAL
     Route: 048
     Dates: start: 20040722, end: 20050630
  2. PLETAL [Suspect]
     Indication: LACUNAR INFARCTION
     Dosage: 100 MG, BID; 100 MG BID; 100 MG BID ORAL; 100 MG QD ORAL; 100 MG QD ORAL
     Route: 048
     Dates: start: 20050707, end: 20060706
  3. PLETAL [Suspect]
     Indication: LACUNAR INFARCTION
     Dosage: 100 MG, BID; 100 MG BID; 100 MG BID ORAL; 100 MG QD ORAL; 100 MG QD ORAL
     Route: 048
     Dates: start: 20060707, end: 20060809
  4. PLETAL [Suspect]
     Indication: LACUNAR INFARCTION
     Dosage: 100 MG, BID; 100 MG BID; 100 MG BID ORAL; 100 MG QD ORAL; 100 MG QD ORAL
     Route: 048
     Dates: start: 20060820, end: 20070131
  5. PLETAL [Suspect]
     Indication: LACUNAR INFARCTION
     Dosage: 100 MG, BID; 100 MG BID; 100 MG BID ORAL; 100 MG QD ORAL; 100 MG QD ORAL
     Route: 048
     Dates: start: 20070201
  6. CEROCRAL (IFENPRODIL TARTRATE) [Concomitant]
  7. THIATON (TIQUIZIUM BROMIDE) [Concomitant]
  8. MICARDIS [Concomitant]
  9. LIPITOR [Concomitant]
  10. LAC-B (BIFIDOBACTERIUM) [Concomitant]
  11. LACTEC (LACTATED RINGERS SOLUTION) [Concomitant]
  12. TANNALBIN (ALBUMIN SILICATE. NATURAL) [Concomitant]
  13. BISMUTH SUBNITRATE (BISMUTH SUBNITRATE) [Concomitant]
  14. FOSMICIN (FOSFOMYCIN CALCIUM) [Concomitant]
  15. PHELLOBERIN (BERBERINE CHLORIDE_GERANIUM HERB EXTRACT) [Concomitant]
  16. BFLUID (MIXED AMINO ACID_CARBOHYDRATE_ELECTROLYTE_VITAMIN COMBINE [Concomitant]
  17. SOLITA-T NO.3 (MAINTENANCE MEDIUM) [Concomitant]
  18. ADSORBIN   (ALUMIMIUM SILICATE N ATURAL) [Concomitant]

REACTIONS (9)
  - BLOOD PRESSURE DECREASED [None]
  - CONDITION AGGRAVATED [None]
  - DIARRHOEA [None]
  - DUODENAL ULCER HAEMORRHAGE [None]
  - HYPERTENSION [None]
  - INCORRECT DOSE ADMINISTERED [None]
  - NASOPHARYNGITIS [None]
  - TOOTH EXTRACTION [None]
  - UPPER RESPIRATORY TRACT INFLAMMATION [None]
